FAERS Safety Report 14705029 (Version 1)
Quarter: 2018Q2

REPORT INFORMATION
  Report Type: Spontaneous
  Country: US (occurrence: US)
  Receive Date: 20180402
  Receipt Date: 20180402
  Transmission Date: 20180711
  Serious: No
  Sender: FDA-Public Use
  Company Number: US-SUNOVION-2018SUN001106

PATIENT
  Age: 61 Year
  Sex: Female
  Weight: 102.4 kg

DRUGS (4)
  1. UTIBRON NEOHALER [Suspect]
     Active Substance: GLYCOPYRROLATE\INDACATEROL MALEATE
     Indication: OXYGEN SATURATION DECREASED
     Dosage: UNK UNK, BID
     Route: 055
     Dates: start: 201803, end: 20180316
  2. QVAR [Concomitant]
     Active Substance: BECLOMETHASONE DIPROPIONATE
     Indication: OXYGEN SATURATION
  3. OXYGEN. [Concomitant]
     Active Substance: OXYGEN
     Dosage: 5 L, UNK
     Route: 055
     Dates: start: 201712
  4. PREDNISONE. [Concomitant]
     Active Substance: PREDNISONE
     Dosage: 10 MG, QD
     Route: 048
     Dates: start: 201712

REACTIONS (7)
  - Dry mouth [Recovered/Resolved]
  - Oxygen saturation decreased [Not Recovered/Not Resolved]
  - Muscle spasms [Not Recovered/Not Resolved]
  - Dysphonia [Recovering/Resolving]
  - Tongue discolouration [Not Recovered/Not Resolved]
  - Heart rate increased [Not Recovered/Not Resolved]
  - Off label use [Unknown]

NARRATIVE: CASE EVENT DATE: 201803
